FAERS Safety Report 25114313 (Version 5)
Quarter: 2025Q2

REPORT INFORMATION
  Report Type: Spontaneous
  Country: US (occurrence: US)
  Receive Date: 20250324
  Receipt Date: 20250610
  Transmission Date: 20250716
  Serious: No
  Sender: SANOFI AVENTIS
  Company Number: US-SA-2025SA082049

PATIENT
  Age: 27 Year
  Sex: Female

DRUGS (2)
  1. DUPIXENT [Suspect]
     Active Substance: DUPILUMAB
     Indication: Eczema
     Route: 058
     Dates: start: 202501, end: 202501
  2. DUPIXENT [Suspect]
     Active Substance: DUPILUMAB
     Indication: Dermatitis atopic
     Dosage: 300 MG, QOW
     Route: 058
     Dates: start: 202502

REACTIONS (12)
  - Eyelid ptosis [Unknown]
  - Eyelid irritation [Recovering/Resolving]
  - Eyelids pruritus [Recovered/Resolved]
  - Strabismus [Recovering/Resolving]
  - Facial pain [Unknown]
  - Acne [Unknown]
  - Pruritus [Unknown]
  - Eyelid exfoliation [Recovered/Resolved]
  - Erythema [Unknown]
  - Skin burning sensation [Unknown]
  - Eczema [Recovering/Resolving]
  - Dermatitis atopic [Unknown]

NARRATIVE: CASE EVENT DATE: 20250101
